FAERS Safety Report 14072256 (Version 1)
Quarter: 2017Q4

REPORT INFORMATION
  Report Type: Spontaneous
  Country: US (occurrence: None)
  Receive Date: 20171010
  Receipt Date: 20171010
  Transmission Date: 20180321
  Serious: Yes (Hospitalization, Other)
  Sender: FDA-Public Use
  Company Number: None

PATIENT
  Age: 69 Year
  Sex: Male

DRUGS (16)
  1. WARFARIN [Concomitant]
     Active Substance: WARFARIN
  2. PREDNISONE. [Concomitant]
     Active Substance: PREDNISONE
  3. HUMULIN R [Concomitant]
     Active Substance: INSULIN HUMAN
  4. LISINOPRIL. [Concomitant]
     Active Substance: LISINOPRIL
  5. LETAIRIS [Suspect]
     Active Substance: AMBRISENTAN
     Indication: PULMONARY ARTERIAL HYPERTENSION
     Route: 048
     Dates: start: 20170920, end: 20171002
  6. X CAB [Concomitant]
  7. HUMULIN N [Concomitant]
     Active Substance: INSULIN HUMAN
  8. ASPIRIN. [Concomitant]
     Active Substance: ASPIRIN
  9. NIFEDIPINE. [Concomitant]
     Active Substance: NIFEDIPINE
  10. SIMVASTETIN [Concomitant]
  11. METFORMIN [Concomitant]
     Active Substance: METFORMIN HYDROCHLORIDE
  12. ULORIC [Concomitant]
     Active Substance: FEBUXOSTAT
  13. FUROSMIDE [Concomitant]
  14. LORACADINE [Concomitant]
  15. METOPROLOL. [Concomitant]
     Active Substance: METOPROLOL
  16. CLONIDINE. [Concomitant]
     Active Substance: CLONIDINE

REACTIONS (3)
  - Fluid overload [None]
  - Fluid retention [None]
  - Pulmonary oedema [None]

NARRATIVE: CASE EVENT DATE: 20171002
